FAERS Safety Report 19152303 (Version 1)
Quarter: 2021Q2

REPORT INFORMATION
  Report Type: Report from Study
  Country: CA (occurrence: CA)
  Receive Date: 20210419
  Receipt Date: 20210419
  Transmission Date: 20210717
  Serious: Yes (Other)
  Sender: FDA-Public Use
  Company Number: CA-SHIRE-CA202030768

PATIENT
  Age: 63 Year
  Sex: Female

DRUGS (3)
  1. CUVITRU [Suspect]
     Active Substance: HUMAN IMMUNOGLOBULIN G
     Indication: PRIMARY IMMUNODEFICIENCY SYNDROME
     Dosage: 8 GRAM, 1X/WEEK
     Route: 058
     Dates: start: 20200917
  2. BECLOMETHASONE [BECLOMETASONE] [Concomitant]
     Active Substance: BECLOMETHASONE
     Indication: PRODUCT USED FOR UNKNOWN INDICATION
  3. RUPALL [Concomitant]
     Active Substance: RUPATADINE FUMARATE
     Indication: PRODUCT USED FOR UNKNOWN INDICATION

REACTIONS (7)
  - Product dose omission issue [Unknown]
  - Nausea [Recovered/Resolved]
  - Anxiety [Recovered/Resolved]
  - Syncope [Recovered/Resolved]
  - Dizziness [Recovered/Resolved]
  - Hyperhidrosis [Recovered/Resolved]
  - Feeling abnormal [Recovered/Resolved]

NARRATIVE: CASE EVENT DATE: 20200917
